FAERS Safety Report 8027611-9 (Version None)
Quarter: 2012Q1

REPORT INFORMATION
  Report Type: 
  Country: None (occurrence: None)
  Receive Date: 20120106
  Receipt Date: 20120102
  Transmission Date: 20120608
  Serious: Yes (Hospitalization, Disabling)
  Sender: FDA-Public Use
  Company Number: CN-SANOFI-AVENTIS-2012SA000302

PATIENT
  Age: 34 Year
  Sex: Male
  Weight: 55 kg

DRUGS (3)
  1. ELOXATIN [Suspect]
     Route: 041
     Dates: start: 20110902, end: 20111201
  2. CELEBREX [Suspect]
     Route: 048
     Dates: start: 20111230, end: 20111231
  3. XELODA [Suspect]
     Dosage: FROM DAY 1 TO DAY 14.
     Route: 048
     Dates: start: 20110902, end: 20111201

REACTIONS (4)
  - DEAFNESS [None]
  - BLINDNESS [None]
  - HEADACHE [None]
  - NECK PAIN [None]
